FAERS Safety Report 5804736-7 (Version None)
Quarter: 2008Q3

REPORT INFORMATION
  Report Type: 
  Country: None (occurrence: None)
  Receive Date: 20080709
  Receipt Date: 20080626
  Transmission Date: 20090109
  Serious: Yes (Other)
  Sender: FDA-Public Use
  Company Number: US-ALLERGAN-0807792US

PATIENT
  Sex: Female

DRUGS (1)
  1. AVAGE CREAM 0.1% [Suspect]
     Indication: SKIN WRINKLING
     Dosage: UNK, QOD
     Route: 061
     Dates: start: 20080605

REACTIONS (1)
  - CHEST DISCOMFORT [None]
